FAERS Safety Report 9124705 (Version 2)
Quarter: 2013Q1

REPORT INFORMATION
  Report Type: Spontaneous
  Country: US (occurrence: US)
  Receive Date: 20130227
  Receipt Date: 20130307
  Transmission Date: 20140127
  Serious: Yes (Death)
  Sender: FDA-Public Use
  Company Number: US-BAXTER-2013BAX006345

PATIENT
  Age: 52 None
  Sex: Male

DRUGS (21)
  1. CYTOXAN (CYCLOPHOSPHAMIDE FOR INJECTION, USP) 500 MG VIAL (LYOPHILIZE [Suspect]
     Indication: BREAST CANCER
     Route: 042
     Dates: start: 2009, end: 20090914
  2. AROMASIN [Suspect]
     Indication: BREAST CANCER
     Route: 048
     Dates: start: 20120831
  3. AROMASIN [Suspect]
     Route: 048
     Dates: start: 20120919, end: 20121015
  4. TAXOL [Concomitant]
     Indication: BREAST CANCER
     Route: 065
     Dates: end: 20091223
  5. TAMOXIFEN [Concomitant]
     Indication: PRODUCT USED FOR UNKNOWN INDICATION
     Route: 065
     Dates: start: 20100330, end: 201011
  6. ZOMETA [Concomitant]
     Indication: PRODUCT USED FOR UNKNOWN INDICATION
     Route: 065
     Dates: start: 201010, end: 201103
  7. LUPRON [Concomitant]
     Indication: PRODUCT USED FOR UNKNOWN INDICATION
     Route: 065
     Dates: start: 20101206, end: 201103
  8. ABRAXANE [Concomitant]
     Indication: METASTASES TO BONE
     Route: 065
     Dates: start: 201107
  9. HALAVEN [Concomitant]
     Indication: PRODUCT USED FOR UNKNOWN INDICATION
     Route: 065
  10. XELODA [Concomitant]
     Indication: PRODUCT USED FOR UNKNOWN INDICATION
     Route: 065
  11. AFINITOR [Concomitant]
     Indication: DISEASE PROGRESSION
     Route: 065
     Dates: start: 20120831
  12. AFINITOR [Concomitant]
     Route: 065
  13. HYDROCODONE [Concomitant]
     Indication: PAIN
     Route: 065
  14. OXYCODONE [Concomitant]
     Indication: PRODUCT USED FOR UNKNOWN INDICATION
     Route: 065
  15. COMPAZINE [Concomitant]
     Indication: NAUSEA
     Route: 065
  16. TUSSIONEX [Concomitant]
     Indication: COUGH
     Route: 065
  17. VITAMIN D [Concomitant]
     Indication: PRODUCT USED FOR UNKNOWN INDICATION
     Dosage: 4000 U
     Route: 065
  18. EXEMESTANE [Concomitant]
     Indication: PRODUCT USED FOR UNKNOWN INDICATION
     Route: 065
  19. LASIX [Concomitant]
     Indication: PRODUCT USED FOR UNKNOWN INDICATION
     Route: 065
  20. SYMBICORT [Concomitant]
     Indication: PRODUCT USED FOR UNKNOWN INDICATION
     Dosage: 1600/4.5 BID
     Route: 065
  21. AVASTIN [Concomitant]
     Indication: METASTASES TO BONE
     Route: 065
     Dates: start: 201107

REACTIONS (4)
  - Death [Fatal]
  - Back pain [Unknown]
  - Febrile neutropenia [Unknown]
  - Dyspnoea exertional [Not Recovered/Not Resolved]
